FAERS Safety Report 13050698 (Version 1)
Quarter: 2016Q4

REPORT INFORMATION
  Report Type: Report from Study
  Country: CA (occurrence: CA)
  Receive Date: 20161221
  Receipt Date: 20161221
  Transmission Date: 20170207
  Serious: Yes (Other)
  Sender: FDA-Public Use
  Company Number: CA-JNJFOC-20160627882

PATIENT
  Age: 46 Year
  Sex: Female
  Weight: 81.65 kg

DRUGS (10)
  1. REMICADE [Suspect]
     Active Substance: INFLIXIMAB
     Indication: COLITIS ULCERATIVE
     Route: 042
     Dates: start: 20160629
  2. ZYLOPRIM [Concomitant]
     Active Substance: ALLOPURINOL
     Route: 048
  3. CORTIFOAM [Concomitant]
     Active Substance: HYDROCORTISONE ACETATE
     Route: 054
  4. PANTOLOC [Concomitant]
     Active Substance: PANTOPRAZOLE SODIUM
     Route: 048
  5. REMICADE [Suspect]
     Active Substance: INFLIXIMAB
     Indication: COLITIS ULCERATIVE
     Route: 042
     Dates: start: 20120516
  6. REMICADE [Suspect]
     Active Substance: INFLIXIMAB
     Indication: COLITIS ULCERATIVE
     Dosage: 30TH INFUSION
     Route: 042
     Dates: start: 20161214
  7. REMICADE [Suspect]
     Active Substance: INFLIXIMAB
     Indication: COLITIS ULCERATIVE
     Route: 042
     Dates: start: 20161019
  8. DICETEL [Concomitant]
     Active Substance: PINAVERIUM BROMIDE
     Route: 048
  9. AZATHIOPRINE. [Concomitant]
     Active Substance: AZATHIOPRINE
     Route: 048
  10. PANTOLOC [Concomitant]
     Active Substance: PANTOPRAZOLE SODIUM
     Route: 048

REACTIONS (6)
  - Frequent bowel movements [Not Recovered/Not Resolved]
  - Incorrect drug administration rate [Unknown]
  - Abdominal pain [Unknown]
  - Haematochezia [Not Recovered/Not Resolved]
  - Off label use [Unknown]
  - General physical health deterioration [Not Recovered/Not Resolved]

NARRATIVE: CASE EVENT DATE: 20160628
